FAERS Safety Report 22082593 (Version 1)
Quarter: 2023Q1

REPORT INFORMATION
  Report Type: Spontaneous
  Country: BR (occurrence: BR)
  Receive Date: 20230310
  Receipt Date: 20230310
  Transmission Date: 20230418
  Serious: Yes (Other)
  Sender: FDA-Public Use
  Company Number: BR-BoehringerIngelheim-2023-BI-222998

PATIENT
  Age: 72 Year
  Weight: 95 kg

DRUGS (5)
  1. MICARDIS HCT [Suspect]
     Active Substance: HYDROCHLOROTHIAZIDE\TELMISARTAN
     Indication: Hypertension
     Dosage: 80MG/12.5MG 1 TABLET IN THE MORNING FASTING.
     Route: 048
  2. MICARDIS [Suspect]
     Active Substance: TELMISARTAN
     Indication: Hypertension
     Dosage: 1 TABLET A DAY.
     Route: 048
  3. FLURAZEPAM HYDROCHLORIDE [Concomitant]
     Active Substance: FLURAZEPAM HYDROCHLORIDE
     Indication: Sleep disorder
     Dosage: 1 TABLET AT NIGHT BEFORE BEDTIME.
     Route: 048
     Dates: start: 202301
  4. NOVOPRAZOL [Concomitant]
     Indication: Gastric disorder
     Dosage: 1 TABLET FASTING
     Route: 048
  5. COSOPT [Concomitant]
     Active Substance: DORZOLAMIDE HYDROCHLORIDE\TIMOLOL MALEATE
     Indication: Glaucoma
     Dosage: 1 DROP IN THE MORNING 1 DROP IN THE EVENING.

REACTIONS (28)
  - Glaucoma [Unknown]
  - Deafness [Unknown]
  - Multiple sclerosis [Unknown]
  - Cataract [Unknown]
  - Depression [Unknown]
  - Thyroid mass [Unknown]
  - Hiatus hernia [Unknown]
  - Cataract [Unknown]
  - COVID-19 [Unknown]
  - Malaise [Unknown]
  - Drug ineffective [Unknown]
  - Memory impairment [Unknown]
  - Spinal disorder [Unknown]
  - Fall [Unknown]
  - Varicose vein [Unknown]
  - Hypoacusis [Unknown]
  - Hypersensitivity [Unknown]
  - Anosmia [Unknown]
  - Cough [Unknown]
  - Dizziness [Unknown]
  - Gallbladder operation [Unknown]
  - Appendicectomy [Unknown]
  - Hysterectomy [Unknown]
  - Ligament sprain [Unknown]
  - Blood pressure inadequately controlled [Unknown]
  - Influenza [Unknown]
  - Rhinorrhoea [Unknown]
  - Dysstasia [Unknown]

NARRATIVE: CASE EVENT DATE: 20220101
